FAERS Safety Report 7131978-3 (Version None)
Quarter: 2010Q4

REPORT INFORMATION
  Report Type: 
  Country: None (occurrence: None)
  Receive Date: 20101202
  Receipt Date: 20101124
  Transmission Date: 20110411
  Serious: Yes (Other)
  Sender: FDA-Public Use
  Company Number: IT-CUBIST-2010S1001576

PATIENT
  Age: 71 Year
  Sex: Female
  Weight: 60 kg

DRUGS (6)
  1. CUBICIN [Suspect]
     Indication: ENDOCARDITIS
     Route: 042
     Dates: start: 20100410, end: 20100416
  2. CUBICIN [Suspect]
  3. LINEZOLID [Concomitant]
     Indication: STAPHYLOCOCCAL INFECTION
     Route: 042
  4. FUROSEMIDE [Concomitant]
     Indication: HYPERTENSION
     Route: 048
     Dates: start: 20100401, end: 20100430
  5. IRBESARTAN [Concomitant]
     Indication: HYPERTENSION
     Route: 048
     Dates: start: 20100401, end: 20100430
  6. PARACETAMOL [Concomitant]
     Indication: PYREXIA
     Route: 048
     Dates: start: 20100401, end: 20100430

REACTIONS (2)
  - ENDOCARDITIS [None]
  - RENAL FAILURE [None]
